FAERS Safety Report 17094849 (Version 3)
Quarter: 2025Q3

REPORT INFORMATION
  Report Type: Spontaneous
  Country: EU (occurrence: EU)
  Receive Date: 20191130
  Receipt Date: 20250710
  Transmission Date: 20251021
  Serious: Yes (Other)
  Sender: AUROBINDO
  Company Number: EU-ROCHE-2465098

PATIENT
  Age: 55 Year
  Sex: Male

DRUGS (6)
  1. CEFTRIAXONE [Suspect]
     Active Substance: CEFTRIAXONE
     Indication: Product used for unknown indication
     Route: 065
  2. CLARITHROMYCIN [Suspect]
     Active Substance: CLARITHROMYCIN
     Indication: Product used for unknown indication
     Route: 065
  3. AMPICILLIN [Suspect]
     Active Substance: AMPICILLIN
     Indication: Product used for unknown indication
     Route: 065
  4. IMIPENEM [Suspect]
     Active Substance: IMIPENEM
     Indication: Product used for unknown indication
     Route: 065
  5. SULFAMETHOXAZOLE\TRIMETHOPRIM [Suspect]
     Active Substance: SULFAMETHOXAZOLE\TRIMETHOPRIM
     Indication: Pulmonary nocardiosis
     Route: 065
  6. AMIKACIN [Concomitant]
     Active Substance: AMIKACIN
     Indication: Product used for unknown indication
     Route: 065

REACTIONS (16)
  - Abdominal pain upper [Recovering/Resolving]
  - Chills [Recovering/Resolving]
  - Cholestasis [Recovering/Resolving]
  - Coagulopathy [Recovering/Resolving]
  - Crepitations [Recovering/Resolving]
  - Gastrointestinal disorder [Recovered/Resolved]
  - Hepatic cytolysis [Recovering/Resolving]
  - Inflammatory marker increased [Recovering/Resolving]
  - Malaise [Recovering/Resolving]
  - Nasopharyngitis [Recovering/Resolving]
  - Ocular hyperaemia [Recovering/Resolving]
  - Pulmonary physical examination abnormal [Recovering/Resolving]
  - Pyrexia [Recovering/Resolving]
  - Respiratory failure [Recovering/Resolving]
  - Rash maculo-papular [Recovering/Resolving]
  - Snoring [Recovering/Resolving]
